FAERS Safety Report 9819701 (Version 1)
Quarter: 2014Q1

REPORT INFORMATION
  Report Type: Spontaneous
  Country: US (occurrence: US)
  Receive Date: 20140115
  Receipt Date: 20140115
  Transmission Date: 20141002
  Serious: No
  Sender: FDA-Public Use
  Company Number: US-ALLERGAN-1313099US

PATIENT
  Sex: Female

DRUGS (1)
  1. PRED FORTE [Suspect]
     Indication: PRODUCT USED FOR UNKNOWN INDICATION
     Dosage: 2 GTT, QID
     Route: 047

REACTIONS (2)
  - Erythema of eyelid [Unknown]
  - Eye irritation [Unknown]
